FAERS Safety Report 17238277 (Version 1)
Quarter: 2020Q1

REPORT INFORMATION
  Report Type: Spontaneous
  Country: US (occurrence: US)
  Receive Date: 20200106
  Receipt Date: 20200106
  Transmission Date: 20200409
  Serious: No
  Sender: FDA-Public Use
  Company Number: US-IBSA PHARMA-TSO-2019-0108

PATIENT
  Sex: Male

DRUGS (1)
  1. TIROSINT-SOL [Suspect]
     Active Substance: LEVOTHYROXINE SODIUM
     Indication: THYROIDECTOMY
     Dosage: 175MCG/ML DAILY
     Route: 048
     Dates: start: 201907

REACTIONS (3)
  - Rash [Unknown]
  - Drug level above therapeutic [Unknown]
  - Pseudofolliculitis [Unknown]

NARRATIVE: CASE EVENT DATE: 2019
